FAERS Safety Report 7137888-X (Version None)
Quarter: 2010Q4

REPORT INFORMATION
  Report Type: 
  Country: None (occurrence: None)
  Receive Date: 20101206
  Receipt Date: 20101125
  Transmission Date: 20110411
  Serious: Yes (Other)
  Sender: FDA-Public Use
  Company Number: JP-JNJFOC-20101108482

PATIENT
  Age: 71 Year
  Sex: Female

DRUGS (3)
  1. DOXIL [Suspect]
     Indication: OVARIAN CANCER RECURRENT
     Route: 042
  2. MEROPENEM HYDRATE [Concomitant]
     Indication: ILL-DEFINED DISORDER
     Route: 065
  3. NEUTROGIN [Concomitant]
     Indication: ILL-DEFINED DISORDER
     Route: 065

REACTIONS (2)
  - INTERSTITIAL LUNG DISEASE [None]
  - PYREXIA [None]
